FAERS Safety Report 5287063-9 (Version None)
Quarter: 2007Q2

REPORT INFORMATION
  Report Type: 
  Country: None (occurrence: None)
  Receive Date: 20070404
  Receipt Date: 20070323
  Transmission Date: 20071010
  Serious: Yes (Other)
  Sender: FDA-Public Use
  Company Number: IE-PFIZER INC-2007024985

PATIENT
  Age: 65 Year
  Sex: Male

DRUGS (1)
  1. CHAMPIX [Suspect]

REACTIONS (3)
  - EXCORIATION [None]
  - EYE SWELLING [None]
  - LACRIMATION INCREASED [None]
